FAERS Safety Report 21487226 (Version 3)
Quarter: 2022Q4

REPORT INFORMATION
  Report Type: Report from Study
  Country: CA (occurrence: CA)
  Receive Date: 20221020
  Receipt Date: 20221220
  Transmission Date: 20230112
  Serious: Yes (Hospitalization)
  Sender: FDA-Public Use
  Company Number: CA-VERTEX PHARMACEUTICALS-2022-015475

PATIENT
  Age: 21 Year
  Sex: Male
  Weight: 56 kg

DRUGS (4)
  1. ELEXACAFTOR\IVACAFTOR\TEZACAFTOR [Suspect]
     Active Substance: ELEXACAFTOR\IVACAFTOR\TEZACAFTOR
     Indication: Cystic fibrosis
     Dosage: 2 ORANGE TABLETS (100 MG ELEXA/ 50 MG TEZA/ 75MG IVA) IN AM AND 1 BLUE TABLET (150 MG IVA) IN PM
     Route: 048
     Dates: start: 20220420
  2. PLACEBO [Suspect]
     Active Substance: UNSPECIFIED INGREDIENT
     Indication: Cystic fibrosis
     Dosage: UNK
     Route: 048
     Dates: start: 20220420
  3. BASAGLAR [Concomitant]
     Active Substance: INSULIN GLARGINE
     Dosage: 100 U/ML
  4. POLYETHYLENE GLYCOL [Concomitant]
     Active Substance: POLYETHYLENE GLYCOL

REACTIONS (1)
  - Faecaloma [Recovered/Resolved]

NARRATIVE: CASE EVENT DATE: 20220919
